FAERS Safety Report 23430969 (Version 1)
Quarter: 2024Q1

REPORT INFORMATION
  Report Type: Spontaneous
  Country: US (occurrence: None)
  Receive Date: 20240123
  Receipt Date: 20240123
  Transmission Date: 20240410
  Serious: Yes (Hospitalization)
  Sender: FDA-Public Use
  Company Number: US-Axsome Therapeutics, Inc.-AXS202401-000044

PATIENT
  Sex: Female
  Weight: 3.17 kg

DRUGS (1)
  1. SUNOSI [Suspect]
     Active Substance: SOLRIAMFETOL
     Indication: Product used for unknown indication
     Dosage: UNK
     Route: 064

REACTIONS (3)
  - Blood calcium decreased [Unknown]
  - Premature baby [Unknown]
  - Foetal exposure during pregnancy [Unknown]
